FAERS Safety Report 17652471 (Version 1)
Quarter: 2020Q2

REPORT INFORMATION
  Report Type: Spontaneous
  Country: GB (occurrence: GB)
  Receive Date: 20200409
  Receipt Date: 20200409
  Transmission Date: 20200713
  Serious: Yes (Other)
  Sender: FDA-Public Use
  Company Number: GB-PFIZER INC-2020142628

PATIENT
  Age: 28 Year
  Sex: Female

DRUGS (2)
  1. DOXYCYCLINE MONOHYDRATE [Suspect]
     Active Substance: DOXYCYCLINE
     Indication: LOWER RESPIRATORY TRACT INFECTION
     Dosage: 2 DF, 1X/DAY
     Route: 048
     Dates: start: 20200313, end: 20200313
  2. DOXYCYCLINE MONOHYDRATE [Suspect]
     Active Substance: DOXYCYCLINE
     Dosage: 1 DF, 1X/DAY
     Route: 048
     Dates: start: 20200314, end: 20200320

REACTIONS (4)
  - Rash [Unknown]
  - Blister [Unknown]
  - Blood disorder [Unknown]
  - Contusion [Unknown]

NARRATIVE: CASE EVENT DATE: 20200316
